FAERS Safety Report 9890437 (Version 1)
Quarter: 2014Q1

REPORT INFORMATION
  Report Type: Spontaneous
  Country: US (occurrence: None)
  Receive Date: 20140210
  Receipt Date: 20140210
  Transmission Date: 20141002
  Serious: No
  Sender: FDA-Public Use
  Company Number: None

PATIENT
  Age: 65 Year
  Sex: Female

DRUGS (1)
  1. RABEPRAZOLE [Suspect]
     Route: 048
     Dates: start: 20140122

REACTIONS (3)
  - Dizziness [None]
  - Abdominal discomfort [None]
  - Dyspepsia [None]
